FAERS Safety Report 15613634 (Version 2)
Quarter: 2021Q3

REPORT INFORMATION
  Report Type: Report from Study
  Country: US (occurrence: US)
  Receive Date: 20181113
  Receipt Date: 20210701
  Transmission Date: 20211014
  Serious: No
  Sender: FDA-Public Use
  Company Number: US-SHIRE-US201843223

PATIENT
  Age: 62 Year
  Sex: Male

DRUGS (4)
  1. TEDUGLUTIDE [Suspect]
     Active Substance: TEDUGLUTIDE
     Indication: CROHN^S DISEASE
     Dosage: 0.365 (UNKNOWN UNIT)
     Route: 050
     Dates: start: 20151109, end: 20210619
  2. TEDUGLUTIDE [Suspect]
     Active Substance: TEDUGLUTIDE
     Indication: CROHN^S DISEASE
     Dosage: 0.365 (UNKNOWN UNIT)
     Route: 050
     Dates: start: 20151109, end: 20210619
  3. TEDUGLUTIDE [Suspect]
     Active Substance: TEDUGLUTIDE
     Indication: CROHN^S DISEASE
     Dosage: 0.365 (UNKNOWN UNIT)
     Route: 050
     Dates: start: 20151109, end: 20210619
  4. TEDUGLUTIDE [Suspect]
     Active Substance: TEDUGLUTIDE
     Indication: CROHN^S DISEASE
     Dosage: 0.365 (UNKNOWN UNIT)
     Route: 050
     Dates: start: 20151109, end: 20210619

REACTIONS (4)
  - Nausea [Not Recovered/Not Resolved]
  - Therapy interrupted [Unknown]
  - Vomiting [Not Recovered/Not Resolved]
  - Subcutaneous abscess [Unknown]

NARRATIVE: CASE EVENT DATE: 20181001
